FAERS Safety Report 10879748 (Version 2)
Quarter: 2016Q2

REPORT INFORMATION
  Report Type: Spontaneous
  Country: DK (occurrence: DK)
  Receive Date: 20150302
  Receipt Date: 20160519
  Transmission Date: 20160815
  Serious: Yes (Hospitalization)
  Sender: FDA-Public Use
  Company Number: PHHY2015DK020256

PATIENT
  Age: 58 Year
  Sex: Female

DRUGS (7)
  1. TRILEPTAL [Suspect]
     Active Substance: OXCARBAZEPINE
     Indication: PROPHYLAXIS
     Route: 065
  2. KALEORID [Concomitant]
     Active Substance: POTASSIUM CHLORIDE
     Indication: PROPHYLAXIS
     Dosage: 1 DF(1 TABLET),QD
     Route: 048
     Dates: start: 20130726
  3. PERATSIN [Concomitant]
     Active Substance: PERPHENAZINE
     Indication: MENTAL DISORDER
     Dosage: 4 MG, UNK
     Route: 048
  4. FURIX [Concomitant]
     Active Substance: FUROSEMIDE
     Indication: PRODUCT USED FOR UNKNOWN INDICATION
     Dosage: UNK
     Route: 065
  5. LYRICA [Suspect]
     Active Substance: PREGABALIN
     Indication: ANXIETY
     Dosage: 50 MG, BID
     Route: 048
     Dates: start: 20131028
  6. SERTRALINE [Suspect]
     Active Substance: SERTRALINE HYDROCHLORIDE
     Indication: PRODUCT USED FOR UNKNOWN INDICATION
     Route: 065
  7. PROPRANOLOL [Concomitant]
     Active Substance: PROPRANOLOL\PROPRANOLOL HYDROCHLORIDE
     Indication: TREMOR
     Dosage: 2 DF, TID
     Route: 065
     Dates: start: 20130726

REACTIONS (14)
  - Speech disorder [Recovered/Resolved]
  - Dislocation of vertebra [Unknown]
  - Pneumonia [Unknown]
  - Fall [Recovered/Resolved]
  - Paraesthesia [Unknown]
  - Spinal compression fracture [Unknown]
  - Contusion [Unknown]
  - Syncope [Recovered/Resolved]
  - Myalgia [Recovering/Resolving]
  - Hyponatraemia [Recovered/Resolved]
  - Somnolence [Recovered/Resolved]
  - Dizziness [Not Recovered/Not Resolved]
  - Decubitus ulcer [Unknown]
  - Balance disorder [Not Recovered/Not Resolved]

NARRATIVE: CASE EVENT DATE: 201311
